FAERS Safety Report 6307321-6 (Version None)
Quarter: 2009Q3

REPORT INFORMATION
  Report Type: 
  Country: None (occurrence: None)
  Receive Date: 20090811
  Receipt Date: 20090713
  Transmission Date: 20100115
  Serious: Yes (Other)
  Sender: FDA-Public Use
  Company Number: 1000007440

PATIENT
  Age: 45 Year
  Sex: Female

DRUGS (4)
  1. SAVELLA [Suspect]
     Dosage: SEE IMAGE
     Route: 048
  2. . [Concomitant]
  3. . [Concomitant]
  4. . [Concomitant]

REACTIONS (1)
  - HYPERTENSIVE CRISIS [None]
